FAERS Safety Report 18916173 (Version 1)
Quarter: 2021Q1

REPORT INFORMATION
  Report Type: Spontaneous
  Country: US (occurrence: US)
  Receive Date: 20210219
  Receipt Date: 20210219
  Transmission Date: 20210420
  Serious: No
  Sender: FDA-Public Use
  Company Number: US-THERAPEUTICSMD-2020TMD05912

PATIENT
  Age: 55 Year
  Sex: Female

DRUGS (2)
  1. BIJUVA [Suspect]
     Active Substance: ESTRADIOL\PROGESTERONE
     Dosage: 1/100 MG (1 CAPSULE), 1X/DAY
     Route: 048
     Dates: start: 2020, end: 202012
  2. BIJUVA [Suspect]
     Active Substance: ESTRADIOL\PROGESTERONE
     Dosage: 1/100 MG (1 CAPSULE), EVERY 48 HOURS
     Route: 048
     Dates: start: 202012

REACTIONS (2)
  - Hot flush [Not Recovered/Not Resolved]
  - Intentional product use issue [Not Recovered/Not Resolved]

NARRATIVE: CASE EVENT DATE: 202012
